FAERS Safety Report 8002049-9 (Version None)
Quarter: 2011Q4

REPORT INFORMATION
  Report Type: 
  Country: None (occurrence: None)
  Receive Date: 20111222
  Receipt Date: 20111219
  Transmission Date: 20120403
  Serious: Yes (Hospitalization)
  Sender: FDA-Public Use
  Company Number: GB-TEVA-314027ISR

PATIENT
  Age: 32 Year
  Sex: Male
  Weight: 61 kg

DRUGS (16)
  1. VALPROIC ACID [Suspect]
     Dosage: 600 MILLIGRAM;
     Route: 042
     Dates: start: 20111031, end: 20111103
  2. OMEPRAZOLE [Concomitant]
  3. MAGNESIUM SULFATE [Concomitant]
  4. MIDAZOLAM [Concomitant]
  5. MAGNESIUM [Concomitant]
  6. FUROSEMIDE [Concomitant]
  7. SENNA [Concomitant]
  8. VANCOMYCIN HYCHLORIDE [Suspect]
     Dosage: 2000 MILLIGRAM;
     Route: 042
     Dates: start: 20111101, end: 20111107
  9. CHLORHEXIDINE GLUCONATE [Concomitant]
  10. PABRINEX [Concomitant]
  11. PROPOFOL [Concomitant]
  12. PRONTODERM [Concomitant]
  13. DOCUSATE [Concomitant]
  14. LEVETIRACETAM [Suspect]
     Indication: CONVULSION
     Dosage: 500 MILLIGRAM; ROUTE: ENTERAL
     Dates: start: 20111103, end: 20111103
  15. ALFENTANIL [Concomitant]
  16. METOCLOPRAMIDE [Concomitant]

REACTIONS (3)
  - HEPATITIS [None]
  - DRUG RASH WITH EOSINOPHILIA AND SYSTEMIC SYMPTOMS [None]
  - TUBULOINTERSTITIAL NEPHRITIS [None]
